APPROVED DRUG PRODUCT: FEXOFENADINE HYDROCHLORIDE ALLERGY
Active Ingredient: FEXOFENADINE HYDROCHLORIDE
Strength: 60MG
Dosage Form/Route: TABLET;ORAL
Application: A091567 | Product #004
Applicant: SUN PHARMACEUTICAL INDUSTRIES LTD
Approved: Feb 6, 2012 | RLD: No | RS: No | Type: DISCN